FAERS Safety Report 7151461 (Version 16)
Quarter: 2014Q2

REPORT INFORMATION
  Report Type: Spontaneous
  Country: US (occurrence: US)
  Receive Date: 20091016
  Receipt Date: 20140502
  Transmission Date: 20141212
  Serious: Yes (Death, Hospitalization, Other)
  Sender: FDA-Public Use
  Company Number: PHEH2009US13536

PATIENT
  Age: 55 Year
  Sex: Female
  Weight: 60.32 kg

DRUGS (22)
  1. AREDIA [Suspect]
     Indication: METASTASES TO BONE
     Route: 041
  2. ZOMETA [Suspect]
     Route: 041
  3. CHEMOTHERAPEUTICS NOS [Concomitant]
  4. RADIATION [Concomitant]
  5. AMOX [Concomitant]
  6. CENTRUM SILVER [Concomitant]
  7. HERCEPTIN [Concomitant]
  8. ARANESP [Concomitant]
  9. TAXOL [Concomitant]
  10. AMPICILLIN [Concomitant]
  11. GEMCITABINE [Concomitant]
  12. CARBOPLATIN [Concomitant]
  13. CARDIZEM [Concomitant]
  14. AROMASIN [Concomitant]
  15. FASLODEX [Concomitant]
  16. VANTIN [Concomitant]
  17. ZOFRAN [Concomitant]
  18. KLOR-CON [Concomitant]
  19. PROMETHAZINE [Concomitant]
  20. FERROUS SULPHATE [Concomitant]
  21. XELODA [Concomitant]
  22. LAPATINIB [Concomitant]

REACTIONS (115)
  - Death [Fatal]
  - Metastases to bone [Not Recovered/Not Resolved]
  - Bone pain [Unknown]
  - Osteosclerosis [Unknown]
  - Pleural effusion [Unknown]
  - Peritonsillar abscess [Unknown]
  - Trismus [Unknown]
  - Aphonia [Unknown]
  - Chronic tonsillitis [Recovered/Resolved]
  - Microcytic anaemia [Unknown]
  - Thrombocytosis [Unknown]
  - Hypercalcaemia [Unknown]
  - Nausea [Unknown]
  - Vomiting [Recovering/Resolving]
  - Constipation [Recovered/Resolved]
  - Osteonecrosis of jaw [Unknown]
  - Injury [Unknown]
  - Osteolysis [Unknown]
  - Metastases to lung [Unknown]
  - Mass [Unknown]
  - Pulmonary fibrosis [Unknown]
  - Metastases to spine [Unknown]
  - Metastases to central nervous system [Unknown]
  - Liver disorder [Unknown]
  - Renal disorder [Unknown]
  - Lymphadenopathy [Unknown]
  - Overdose [Unknown]
  - Pain in jaw [Unknown]
  - Skin lesion [Unknown]
  - Pericardial effusion [Unknown]
  - Tricuspid valve incompetence [Unknown]
  - Mitral valve incompetence [Unknown]
  - Aortic arteriosclerosis [Unknown]
  - Cerebral ischaemia [Unknown]
  - Decubitus ulcer [Unknown]
  - Sinus disorder [Unknown]
  - Hiatus hernia [Unknown]
  - Gastritis [Unknown]
  - Gastric polyps [Unknown]
  - Femoral neck fracture [Unknown]
  - Pathological fracture [Unknown]
  - Spinal cord compression [Unknown]
  - Pulmonary mass [Unknown]
  - Hip fracture [Unknown]
  - Primary sequestrum [Unknown]
  - Exposed bone in jaw [Unknown]
  - Tooth disorder [Unknown]
  - Mastication disorder [Unknown]
  - Gingival swelling [Unknown]
  - Loose tooth [Unknown]
  - Oral pain [Unknown]
  - Sensitivity of teeth [Unknown]
  - Osteomyelitis [Unknown]
  - Weight decreased [Unknown]
  - Sleep apnoea syndrome [Unknown]
  - Metastases to pelvis [Unknown]
  - Spinal osteoarthritis [Unknown]
  - Intervertebral disc protrusion [Unknown]
  - Bronchitis [Unknown]
  - Atrial tachycardia [Unknown]
  - Abdominal pain [Unknown]
  - Peroneal nerve palsy [Unknown]
  - Paraesthesia [Unknown]
  - Hypoaesthesia [Unknown]
  - Infection [Recovering/Resolving]
  - Gastritis erosive [Unknown]
  - Cholangiectasis acquired [Unknown]
  - Haemorrhoids [Unknown]
  - Diverticulum [Unknown]
  - Pneumothorax [Recovered/Resolved]
  - Cardiac failure congestive [Unknown]
  - Cardiac tamponade [Unknown]
  - Supraventricular tachycardia [Unknown]
  - Respiratory failure [Unknown]
  - Hypoalbuminaemia [Unknown]
  - Malnutrition [Unknown]
  - Pain in extremity [Recovering/Resolving]
  - Back pain [Recovering/Resolving]
  - Headache [Recovering/Resolving]
  - Bone lesion [Recovering/Resolving]
  - Generalised tonic-clonic seizure [Recovered/Resolved]
  - Encephalopathy [Recovered/Resolved]
  - Confusional state [Recovered/Resolved]
  - Pyrexia [Recovered/Resolved]
  - Bacteraemia [Recovered/Resolved]
  - Urinary tract infection [Recovered/Resolved]
  - Hypertension [Recovering/Resolving]
  - Leukocytosis [Recovering/Resolving]
  - Hypothyroidism [Recovering/Resolving]
  - Hypomagnesaemia [Recovering/Resolving]
  - Neuropathy peripheral [Unknown]
  - Atelectasis [Recovering/Resolving]
  - Asthenia [Recovering/Resolving]
  - General physical health deterioration [Recovering/Resolving]
  - Chronic obstructive pulmonary disease [Recovering/Resolving]
  - Dyspnoea exertional [Not Recovered/Not Resolved]
  - Dyspnoea [Recovering/Resolving]
  - Iron deficiency anaemia [Recovering/Resolving]
  - Hypokalaemia [Recovering/Resolving]
  - Deafness [Unknown]
  - Urinary incontinence [Unknown]
  - Gait disturbance [Unknown]
  - Depressed mood [Unknown]
  - Wound infection [Unknown]
  - Wound [Not Recovered/Not Resolved]
  - Emphysema [Unknown]
  - Bone disorder [Unknown]
  - Kyphosis [Unknown]
  - Ligament disorder [Unknown]
  - Bone loss [Unknown]
  - Jaw fracture [Unknown]
  - Paraesthesia oral [Unknown]
  - Oral cavity fistula [Unknown]
  - Impaired healing [Unknown]
  - Post procedural complication [Unknown]
